FAERS Safety Report 25300280 (Version 3)
Quarter: 2025Q2

REPORT INFORMATION
  Report Type: Report from Study
  Country: US (occurrence: US)
  Receive Date: 20250512
  Receipt Date: 20250610
  Transmission Date: 20250717
  Serious: Yes (Disabling)
  Sender: GILEAD
  Company Number: US-GILEAD-2025-0712670

PATIENT
  Age: 61 Year
  Sex: Female

DRUGS (1)
  1. SELADELPAR [Suspect]
     Active Substance: SELADELPAR
     Indication: Product used for unknown indication
     Dosage: 10 MG, QD
     Route: 048

REACTIONS (6)
  - Asthenia [Unknown]
  - Fatigue [Unknown]
  - Asthenia [Unknown]
  - Somnolence [Unknown]
  - Decreased interest [Unknown]
  - Decreased appetite [Unknown]

NARRATIVE: CASE EVENT DATE: 20250503
